FAERS Safety Report 5532294-3 (Version None)
Quarter: 2007Q4

REPORT INFORMATION
  Report Type: 
  Country: None (occurrence: None)
  Receive Date: 20071203
  Receipt Date: 20071121
  Transmission Date: 20080405
  Serious: Yes (Hospitalization, Other)
  Sender: FDA-Public Use
  Company Number: US-ELI_LILLY_AND_COMPANY-US200711002005

PATIENT
  Sex: Female

DRUGS (5)
  1. FORTEO [Suspect]
     Indication: OSTEOPOROSIS
     Dosage: 20 UG, DAILY (1/D)
     Dates: start: 20070104, end: 20070201
  2. FORTEO [Suspect]
     Dosage: 20 UG, DAILY (1/D)
     Dates: start: 20070601
  3. CALCIUM [Concomitant]
  4. VITAMINS NOS [Concomitant]
  5. ERGOCALCIFEROL [Concomitant]
     Indication: VITAMIN D DECREASED

REACTIONS (3)
  - CONSTIPATION [None]
  - HYPERPARATHYROIDISM PRIMARY [None]
  - NAUSEA [None]
